FAERS Safety Report 14016118 (Version 6)
Quarter: 2019Q4

REPORT INFORMATION
  Report Type: Report from Study
  Country: US (occurrence: US)
  Receive Date: 20170927
  Receipt Date: 20191031
  Transmission Date: 20200122
  Serious: Yes (Other)
  Sender: FDA-Public Use
  Company Number: PHHY2015US099154

PATIENT
  Age: 51 Year
  Sex: Female

DRUGS (1)
  1. GILENYA [Suspect]
     Active Substance: FINGOLIMOD HYDROCHLORIDE
     Indication: MULTIPLE SCLEROSIS
     Dosage: 0.5 MG, QD
     Route: 048

REACTIONS (18)
  - Photosensitivity reaction [Recovered/Resolved]
  - Cognitive disorder [Unknown]
  - Fall [Unknown]
  - Lentigo [Recovered/Resolved]
  - Musculoskeletal pain [Recovered/Resolved]
  - Lymphocyte count decreased [Unknown]
  - Rosacea [Recovered/Resolved]
  - Blood bilirubin increased [Recovered/Resolved]
  - Sleep apnoea syndrome [Unknown]
  - Actinic keratosis [Unknown]
  - Seborrhoeic keratosis [Recovered/Resolved]
  - Dizziness [Unknown]
  - Vertigo [Unknown]
  - Melanocytic naevus [Recovered/Resolved]
  - Blood cholesterol increased [Unknown]
  - Sleep disorder [Unknown]
  - Pain in extremity [Unknown]
  - Arthralgia [Unknown]

NARRATIVE: CASE EVENT DATE: 20141202
